FAERS Safety Report 4449722-7 (Version None)
Quarter: 2004Q3

REPORT INFORMATION
  Report Type: 
  Country: None (occurrence: None)
  Receive Date: 20040913
  Receipt Date: 20040822
  Transmission Date: 20050211
  Serious: Yes (Hospitalization)
  Sender: FDA-Public Use
  Company Number: F01200402564

PATIENT
  Age: 64 Year
  Sex: Male

DRUGS (16)
  1. OXALIPLATIN - SOLUTION - 85 MG/M2 [Suspect]
     Indication: COLORECTAL CANCER
     Dosage: 85 MG/M2 Q2W - INTRAVENOUS NOS
     Route: 042
     Dates: start: 20040331, end: 20040331
  2. FLUOROURACIL [Suspect]
     Dosage: 400 MG/M2 BOLUS THEN 2400 MG/M2 AS 46 HOURS INFUSION Q2W - INTRAVENOUS NOS
     Route: 042
     Dates: start: 20040331, end: 20040402
  3. LEUCOVORIN - SOLUTION - 350 MG [Suspect]
     Dosage: 350 MG Q2W - INTRAVENOUS NOS
     Route: 042
     Dates: start: 20040331, end: 20040331
  4. AVASTIN [Suspect]
     Dosage: ... /KG OVER 30-90 MINUTES IV INFUSION ON DAY 1, Q2W - INTRAVENOUS NOS
     Route: 042
     Dates: start: 20040331, end: 20040331
  5. CIPROFLOXACIN [Concomitant]
  6. SODIUM CHLORIDE 0.9% [Concomitant]
  7. MILK OF MAGNESIA TAB [Concomitant]
  8. FLEET RECTAROID ENEMA [Concomitant]
  9. MAGNESIUM CITRATE [Concomitant]
  10. SENNA [Concomitant]
  11. TAMSULOSIN HYDROCHLORIDE [Concomitant]
  12. UROGESIC BLUE [Concomitant]
  13. OXYCONTIN [Concomitant]
  14. MORPHINE SULFATE [Concomitant]
  15. METOCLOPRAMIDE [Concomitant]
  16. CHLORPROMAZINE HCL [Concomitant]

REACTIONS (14)
  - CORYNEBACTERIUM INFECTION [None]
  - ENTEROCOCCAL INFECTION [None]
  - IMPAIRED HEALING [None]
  - INTESTINAL FISTULA [None]
  - INTESTINAL PERFORATION [None]
  - INTESTINAL STOMA COMPLICATION [None]
  - POST PROCEDURAL COMPLICATION [None]
  - POSTOPERATIVE INFECTION [None]
  - SKIN DISORDER [None]
  - STAPHYLOCOCCAL INFECTION [None]
  - STREPTOCOCCAL INFECTION [None]
  - SURGICAL PROCEDURE REPEATED [None]
  - SUTURE RELATED COMPLICATION [None]
  - WOUND DEHISCENCE [None]
